FAERS Safety Report 19175557 (Version 2)
Quarter: 2021Q2

REPORT INFORMATION
  Report Type: Report from Study
  Country: BR (occurrence: BR)
  Receive Date: 20210423
  Receipt Date: 20210507
  Transmission Date: 20210717
  Serious: Yes (Disabling, Other)
  Sender: FDA-Public Use
  Company Number: NVSC2021BR088956

PATIENT
  Weight: 68 kg

DRUGS (5)
  1. VASOPRIL [Concomitant]
     Indication: HYPERTENSION
     Dosage: 3 DF, QD (30 MG, 1 DF IN MORNING AND 2 IN AFTERNOON)
     Route: 048
  2. ATROVENT [Concomitant]
     Active Substance: IPRATROPIUM BROMIDE
     Indication: DYSPNOEA
  3. ONBRIZE [Suspect]
     Active Substance: INDACATEROL MALEATE
     Indication: EMPHYSEMA
     Dosage: 150 UG, QD (1 CAPSULE AT NIGHT)
     Route: 048
     Dates: start: 2017
  4. ATROVENT [Concomitant]
     Active Substance: IPRATROPIUM BROMIDE
     Indication: EMPHYSEMA
     Dosage: 2 DF, TID (120 UG, 20MCG/ JET ?BEING 6 MG IN TOTAL)
     Route: 065
  5. ARADOIS [Concomitant]
     Active Substance: LOSARTAN POTASSIUM
     Indication: HYPERTENSION
     Dosage: 50 MG, QD (1 DF IN MORNING)
     Route: 048

REACTIONS (3)
  - Blindness [Not Recovered/Not Resolved]
  - Visual impairment [Not Recovered/Not Resolved]
  - Hypersensitivity [Unknown]

NARRATIVE: CASE EVENT DATE: 2019
